FAERS Safety Report 5421889-3 (Version None)
Quarter: 2007Q3

REPORT INFORMATION
  Report Type: 
  Country: None (occurrence: None)
  Receive Date: 20070817
  Receipt Date: 20070803
  Transmission Date: 20080115
  Serious: Yes (Hospitalization)
  Sender: FDA-Public Use
  Company Number: 2007S1007252

PATIENT
  Age: 79 Year
  Sex: Male

DRUGS (1)
  1. PROBENECID [Suspect]
     Indication: GOUT
     Dosage: 500 MG; TWICE A DAY; ORAL; 1500 MG; DAILY; ORALQ
     Route: 048

REACTIONS (2)
  - GLOMERULONEPHRITIS MEMBRANOUS [None]
  - NEPHROTIC SYNDROME [None]
